FAERS Safety Report 11660081 (Version 3)
Quarter: 2016Q2

REPORT INFORMATION
  Report Type: Spontaneous
  Country: US (occurrence: US)
  Receive Date: 20151026
  Receipt Date: 20160502
  Transmission Date: 20160815
  Serious: Yes (Death, Other)
  Sender: FDA-Public Use
  Company Number: US-ASTELLAS-2015US038629

PATIENT
  Age: 78 Year
  Sex: Female

DRUGS (1)
  1. LEXISCAN [Suspect]
     Active Substance: REGADENOSON
     Indication: PRODUCT USED FOR UNKNOWN INDICATION
     Dosage: UNK, UNKNOWN FREQ.
     Route: 065
     Dates: start: 20130114, end: 20130114

REACTIONS (9)
  - Gangrene [Unknown]
  - Gait disturbance [Unknown]
  - Arterial occlusive disease [Unknown]
  - Rash macular [Unknown]
  - Peripheral vascular disorder [Unknown]
  - Skin discolouration [Unknown]
  - Coronary artery disease [Fatal]
  - Limb discomfort [Unknown]
  - Off label use [Unknown]

NARRATIVE: CASE EVENT DATE: 20130114
